FAERS Safety Report 8462028 (Version 6)
Quarter: 2017Q4

REPORT INFORMATION
  Report Type: Spontaneous
  Country: US (occurrence: US)
  Receive Date: 20120315
  Receipt Date: 20171010
  Transmission Date: 20180321
  Serious: Yes (Hospitalization, Other)
  Sender: FDA-Public Use
  Company Number: US-009507513-1203USA01692

PATIENT
  Sex: Female

DRUGS (9)
  1. SIMVASTATIN. [Concomitant]
     Active Substance: SIMVASTATIN
     Indication: BLOOD CHOLESTEROL INCREASED
     Dosage: UNK, UNKNOWN
     Route: 065
  2. FOSAMAX [Suspect]
     Active Substance: ALENDRONATE SODIUM
     Indication: BONE LOSS
     Dosage: 10 MG, UNK
     Route: 048
     Dates: start: 199909, end: 20020531
  3. FOSAMAX [Suspect]
     Active Substance: ALENDRONATE SODIUM
     Indication: BONE LOSS
     Dosage: 70 MG, QW
     Route: 048
     Dates: start: 20020612, end: 20080228
  4. SYNTHROID [Concomitant]
     Active Substance: LEVOTHYROXINE SODIUM
     Indication: HYPOTHYROIDISM
     Dosage: UNK, UNKNOWN
     Route: 065
  5. FOSAMAX [Suspect]
     Active Substance: ALENDRONATE SODIUM
     Indication: OSTEOPOROSIS
  6. ALENDRONATE SODIUM. [Suspect]
     Active Substance: ALENDRONATE SODIUM
     Indication: BONE LOSS
     Dosage: 70 MG, QW
     Dates: start: 20080320, end: 20100321
  7. BISOPROLOL [Concomitant]
     Active Substance: BISOPROLOL
     Indication: PRODUCT USED FOR UNKNOWN INDICATION
     Dosage: UNK, UNKNOWN
     Route: 065
  8. LEVOXYL [Concomitant]
     Active Substance: LEVOTHYROXINE SODIUM
     Indication: PRODUCT USED FOR UNKNOWN INDICATION
     Dosage: UNK, UNKNOWN
     Route: 065
  9. FOSAMAX [Suspect]
     Active Substance: ALENDRONATE SODIUM
     Indication: OSTEOPOROSIS

REACTIONS (26)
  - Fluid retention [Unknown]
  - Renal disorder [Unknown]
  - Spinal osteoarthritis [Unknown]
  - Oestrogen deficiency [Unknown]
  - Arthralgia [Unknown]
  - Arthralgia [Unknown]
  - Hip fracture [Unknown]
  - Cardiovascular insufficiency [Unknown]
  - Arthralgia [Unknown]
  - Fall [Unknown]
  - Systemic lupus erythematosus [Unknown]
  - Tooth extraction [Recovering/Resolving]
  - Anaemia [Unknown]
  - Dyslipidaemia [Unknown]
  - Hyperglycaemia [Unknown]
  - Ankle fracture [Unknown]
  - Arthropathy [Unknown]
  - Undifferentiated connective tissue disease [Unknown]
  - Fatigue [Unknown]
  - Congenital cystic kidney disease [Unknown]
  - Femur fracture [Unknown]
  - Renal failure [Unknown]
  - Haemorrhoids [Unknown]
  - Large intestine polyp [Unknown]
  - Carpal tunnel syndrome [Unknown]
  - Dental caries [Unknown]

NARRATIVE: CASE EVENT DATE: 200710
